FAERS Safety Report 15986471 (Version 1)
Quarter: 2019Q1

REPORT INFORMATION
  Report Type: Spontaneous
  Country: MY (occurrence: MY)
  Receive Date: 20190220
  Receipt Date: 20190220
  Transmission Date: 20190418
  Serious: Yes (Life-Threatening, Hospitalization, Disabling)
  Sender: FDA-Public Use
  Company Number: None

PATIENT
  Age: 51 Year
  Sex: Female
  Weight: 68 kg

DRUGS (6)
  1. PARENTAL NUTRITION PRODUCTS [Concomitant]
  2. BROMHEXINE [Concomitant]
     Active Substance: BROMHEXINE
  3. KEYTRUDA [Suspect]
     Active Substance: PEMBROLIZUMAB
     Indication: SQUAMOUS CELL CARCINOMA OF LUNG
     Dosage: 100 IV;EVERY 3 WEEKS?
     Route: 042
     Dates: start: 20181008, end: 20181031
  4. RIVAROXABAN [Concomitant]
     Active Substance: RIVAROXABAN
  5. CALCIUM [Concomitant]
     Active Substance: CALCIUM
  6. FENTANYL. [Concomitant]
     Active Substance: FENTANYL

REACTIONS (3)
  - Headache [None]
  - Vomiting [None]
  - Progressive multifocal leukoencephalopathy [None]

NARRATIVE: CASE EVENT DATE: 20181024
